FAERS Safety Report 6041744-8 (Version None)
Quarter: 2009Q1

REPORT INFORMATION
  Report Type: 
  Country: None (occurrence: None)
  Receive Date: 20090116
  Receipt Date: 20090105
  Transmission Date: 20090719
  Serious: Yes (Hospitalization, Other)
  Sender: FDA-Public Use
  Company Number: AU-PFIZER INC-2008155120

PATIENT

DRUGS (4)
  1. CELECOXIB [Suspect]
     Indication: ARTHRITIS
     Dosage: 200 MG, 1X/DAY
     Route: 048
     Dates: start: 20070201, end: 20080223
  2. DICLOFENAC SODIUM [Suspect]
     Dosage: 50 MG, UNK
     Route: 048
     Dates: start: 20080201, end: 20080223
  3. WARFARIN SODIUM [Suspect]
     Dosage: 7 MG, 1X/DAY
     Route: 048
     Dates: start: 19980817, end: 20080223
  4. CRANBERRY [Suspect]
     Dosage: 10 UNK, 1X/DAY
     Route: 048
     Dates: start: 20080201, end: 20080223

REACTIONS (4)
  - COAGULATION TEST ABNORMAL [None]
  - MELAENA [None]
  - ORTHOSTATIC HYPOTENSION [None]
  - SYNCOPE [None]
